FAERS Safety Report 17536445 (Version 1)
Quarter: 2020Q1

REPORT INFORMATION
  Report Type: Spontaneous
  Country: US (occurrence: US)
  Receive Date: 20200313
  Receipt Date: 20200313
  Transmission Date: 20200409
  Serious: Yes (Other)
  Sender: FDA-Public Use
  Company Number: US-LUPIN PHARMACEUTICALS INC.-2020-01340

PATIENT
  Age: 45 Year
  Sex: Female

DRUGS (4)
  1. METRONIDAZOLE. [Suspect]
     Active Substance: METRONIDAZOLE
     Indication: VULVOVAGINITIS TRICHOMONAL
     Dosage: UNK
     Route: 065
  2. TINIDAZOLE. [Suspect]
     Active Substance: TINIDAZOLE
     Dosage: 01 GRAM, TID
     Route: 048
  3. TINIDAZOLE. [Suspect]
     Active Substance: TINIDAZOLE
     Indication: VULVOVAGINITIS TRICHOMONAL
     Dosage: UNK
     Route: 065
  4. CLINDAMYCIN. [Concomitant]
     Active Substance: CLINDAMYCIN
     Indication: VULVOVAGINITIS TRICHOMONAL
     Dosage: UNK
     Route: 065

REACTIONS (1)
  - Drug resistance [Unknown]
